FAERS Safety Report 23159976 (Version 3)
Quarter: 2023Q4

REPORT INFORMATION
  Report Type: Report from Study
  Country: IT (occurrence: IT)
  Receive Date: 20231108
  Receipt Date: 20231213
  Transmission Date: 20240110
  Serious: Yes (Death, Hospitalization)
  Sender: FDA-Public Use
  Company Number: IT-ROCHE-2734826

PATIENT
  Age: 59 Year
  Sex: Female

DRUGS (3)
  1. ALLOPURINOL [Suspect]
     Active Substance: ALLOPURINOL
     Indication: Product used for unknown indication
     Dosage: UNK
     Route: 065
  2. OBINUTUZUMAB [Suspect]
     Active Substance: OBINUTUZUMAB
     Indication: Follicular lymphoma
     Dosage: 1000MG, MONTHLY(D1,8,15 OF C1,D1 C2-6/C2-8)
     Route: 042
     Dates: start: 20200817
  3. OBINUTUZUMAB [Suspect]
     Active Substance: OBINUTUZUMAB
     Dosage: 1000MG, BIMONTHLY(UNTIL DISEASE PROGRESSION)
     Route: 042
     Dates: end: 20210901

REACTIONS (8)
  - Death [Fatal]
  - Breast cancer [Fatal]
  - Cytomegalovirus infection reactivation [Not Recovered/Not Resolved]
  - Breast pain [Recovered/Resolved]
  - Blood potassium decreased [Recovered/Resolved]
  - Haemorrhoids [Not Recovered/Not Resolved]
  - Rash [Recovered/Resolved]
  - Vomiting [Recovered/Resolved]

NARRATIVE: CASE EVENT DATE: 20201012
